FAERS Safety Report 20660553 (Version 2)
Quarter: 2022Q2

REPORT INFORMATION
  Report Type: Report from Study
  Country: CN (occurrence: CN)
  Receive Date: 20220331
  Receipt Date: 20220411
  Transmission Date: 20220720
  Serious: Yes (Hospitalization)
  Sender: FDA-Public Use
  Company Number: CN-KARYOPHARM-2022KPT000373

PATIENT
  Age: 54 Year
  Sex: Male

DRUGS (19)
  1. SELINEXOR [Suspect]
     Active Substance: SELINEXOR
     Indication: Peripheral T-cell lymphoma unspecified refractory
     Dosage: 60 MG, QD
     Route: 048
     Dates: start: 20211231, end: 20211231
  2. SELINEXOR [Suspect]
     Active Substance: SELINEXOR
     Indication: Angiocentric lymphoma
     Dosage: 60 MG, QD
     Route: 048
     Dates: start: 20220107, end: 20220107
  3. SELINEXOR [Suspect]
     Active Substance: SELINEXOR
     Dosage: 60 MG, QD
     Route: 048
     Dates: start: 20220119, end: 20220119
  4. SELINEXOR [Suspect]
     Active Substance: SELINEXOR
     Dosage: 60 MG, QD
     Route: 048
     Dates: start: 20220126, end: 20220126
  5. SELINEXOR [Suspect]
     Active Substance: SELINEXOR
     Dosage: 60 MG, QD
     Route: 048
     Dates: start: 20220211, end: 20220211
  6. SELINEXOR [Suspect]
     Active Substance: SELINEXOR
     Dosage: 40 MG, QD
     Route: 048
     Dates: start: 20220221, end: 20220221
  7. SELINEXOR [Suspect]
     Active Substance: SELINEXOR
     Dosage: 60 MG, QD
     Route: 048
     Dates: start: 20220304, end: 20220304
  8. SELINEXOR [Suspect]
     Active Substance: SELINEXOR
     Dosage: 40 MG, QD
     Route: 048
     Dates: start: 20220311, end: 20220311
  9. GEMCITABINE [Suspect]
     Active Substance: GEMCITABINE
     Indication: Peripheral T-cell lymphoma unspecified refractory
     Dosage: 1.72 G, QD
     Route: 041
     Dates: start: 20211231, end: 20211231
  10. GEMCITABINE [Suspect]
     Active Substance: GEMCITABINE
     Indication: Angiocentric lymphoma
     Dosage: 1.72 G, QD
     Route: 041
     Dates: start: 20220107, end: 20220107
  11. GEMCITABINE [Suspect]
     Active Substance: GEMCITABINE
     Dosage: 1.73 G, QD
     Route: 041
     Dates: start: 20220119, end: 20220119
  12. GEMCITABINE [Suspect]
     Active Substance: GEMCITABINE
     Dosage: 1.72 G, QD
     Route: 041
     Dates: start: 20220126, end: 20220126
  13. GEMCITABINE [Suspect]
     Active Substance: GEMCITABINE
     Dosage: 1.72 G, QD
     Route: 041
     Dates: start: 20220211, end: 20220211
  14. GEMCITABINE [Suspect]
     Active Substance: GEMCITABINE
     Dosage: 1.72 G, QD
     Route: 041
     Dates: start: 20220304, end: 20220304
  15. GEMCITABINE [Suspect]
     Active Substance: GEMCITABINE
     Dosage: 1.26 G, QD
     Route: 041
     Dates: start: 20220311, end: 20220311
  16. OXALIPLATIN [Suspect]
     Active Substance: OXALIPLATIN
     Indication: Peripheral T-cell lymphoma unspecified refractory
     Dosage: 224 MG, QD
     Route: 041
     Dates: start: 20211231, end: 20211231
  17. OXALIPLATIN [Suspect]
     Active Substance: OXALIPLATIN
     Indication: Angiocentric lymphoma
     Dosage: 225 MG, QD
     Route: 041
     Dates: start: 20220119, end: 20220119
  18. OXALIPLATIN [Suspect]
     Active Substance: OXALIPLATIN
     Dosage: 224 MG, QD
     Route: 041
     Dates: start: 20220211, end: 20220211
  19. OXALIPLATIN [Suspect]
     Active Substance: OXALIPLATIN
     Dosage: 224 MG, QD
     Route: 041
     Dates: start: 20220304, end: 20220304

REACTIONS (1)
  - Platelet count decreased [Recovered/Resolved]

NARRATIVE: CASE EVENT DATE: 20220320
